FAERS Safety Report 7341312-1 (Version None)
Quarter: 2011Q1

REPORT INFORMATION
  Report Type: 
  Country: None (occurrence: None)
  Receive Date: 20110309
  Receipt Date: 20110225
  Transmission Date: 20110831
  Serious: Yes (Other)
  Sender: FDA-Public Use
  Company Number: AU-NICOBRDEV-2011-02451

PATIENT
  Sex: Female

DRUGS (2)
  1. OXYTROL [Suspect]
     Indication: PRODUCT USED FOR UNKNOWN INDICATION
     Dosage: 3.9 MG, DAILY (1 PATCH 2//WEEK) APPROX 6 MONTHS DURATION OF THERAPY
     Route: 062
     Dates: start: 20100101
  2. UNSPECIFIED HERBAL [Concomitant]
     Indication: PRODUCT USED FOR UNKNOWN INDICATION
     Dosage: UNK

REACTIONS (2)
  - TINNITUS [None]
  - DEAFNESS [None]
